FAERS Safety Report 8460822-7 (Version None)
Quarter: 2012Q2

REPORT INFORMATION
  Report Type: 
  Country: None (occurrence: None)
  Receive Date: 20120624
  Receipt Date: 20120423
  Transmission Date: 20120825
  Serious: No
  Sender: FDA-Public Use
  Company Number: PHHY2008KR13601

PATIENT
  Sex: Male
  Weight: 64 kg

DRUGS (1)
  1. EXJADE [Suspect]
     Indication: IRON OVERLOAD
     Dosage: 10 MG/KG
     Route: 048
     Dates: start: 20080628, end: 20091102

REACTIONS (3)
  - RASH [None]
  - SERUM FERRITIN INCREASED [None]
  - PARAESTHESIA ORAL [None]
